FAERS Safety Report 13551256 (Version 6)
Quarter: 2017Q3

REPORT INFORMATION
  Report Type: Report from Study
  Country: US (occurrence: US)
  Receive Date: 20170516
  Receipt Date: 20170719
  Transmission Date: 20171127
  Serious: Yes (Disabling)
  Sender: FDA-Public Use
  Company Number: PHEH2017US014575

PATIENT
  Sex: Female

DRUGS (1)
  1. GILENYA [Suspect]
     Active Substance: FINGOLIMOD HYDROCHLORIDE
     Indication: MULTIPLE SCLEROSIS
     Dosage: 0.5 MG, QD
     Route: 048

REACTIONS (9)
  - Panic reaction [Unknown]
  - Fear of death [Unknown]
  - Somnolence [Unknown]
  - Depressed mood [Unknown]
  - Memory impairment [Unknown]
  - Stress [Unknown]
  - Crying [Unknown]
  - Anxiety [Unknown]
  - Fatigue [Unknown]
